FAERS Safety Report 9654183 (Version 3)
Quarter: 2014Q1

REPORT INFORMATION
  Report Type: Spontaneous
  Country: US (occurrence: US)
  Receive Date: 20131029
  Receipt Date: 20140303
  Transmission Date: 20141002
  Serious: No
  Sender: FDA-Public Use
  Company Number: US-BIOGENIDEC-2013BI083656

PATIENT
  Age: 61 Year
  Sex: Female
  Weight: 48 kg

DRUGS (10)
  1. TECFIDERA [Suspect]
     Indication: MULTIPLE SCLEROSIS
     Route: 048
     Dates: start: 20130801, end: 20130807
  2. TECFIDERA [Suspect]
     Indication: MULTIPLE SCLEROSIS
     Route: 048
     Dates: start: 20130810, end: 20130816
  3. TECFIDERA [Suspect]
     Indication: MULTIPLE SCLEROSIS
     Route: 048
     Dates: start: 20130808
  4. TECFIDERA [Suspect]
     Indication: MULTIPLE SCLEROSIS
     Route: 048
     Dates: start: 20130817, end: 20140213
  5. TRAZODONE [Concomitant]
  6. TIZANIDINE [Concomitant]
  7. CITRACAL [Concomitant]
  8. VITAMIN D [Concomitant]
  9. LIDODERM [Concomitant]
  10. PROBIOTIC [Concomitant]

REACTIONS (9)
  - Headache [Unknown]
  - Nocturia [Unknown]
  - Memory impairment [Unknown]
  - Urine abnormality [Unknown]
  - Weight decreased [Not Recovered/Not Resolved]
  - Diarrhoea [Not Recovered/Not Resolved]
  - Flushing [Recovered/Resolved]
  - Nausea [Not Recovered/Not Resolved]
  - Abdominal pain upper [Not Recovered/Not Resolved]
